FAERS Safety Report 23689438 (Version 1)
Quarter: 2024Q1

REPORT INFORMATION
  Report Type: Spontaneous
  Country: US (occurrence: US)
  Receive Date: 20240331
  Receipt Date: 20240331
  Transmission Date: 20240409
  Serious: No
  Sender: FDA-Public Use
  Company Number: US-SA-SAC20240327000148

PATIENT
  Age: 52 Year
  Sex: Female
  Weight: 132 kg

DRUGS (16)
  1. DUPIXENT [Suspect]
     Active Substance: DUPILUMAB
     Indication: Neurodermatitis
     Dosage: 300 MG, QOW
     Route: 058
     Dates: start: 20231211
  2. ACETAMINOPHEN [Concomitant]
     Active Substance: ACETAMINOPHEN
     Dosage: UNK
  3. LAMICTAL [Concomitant]
     Active Substance: LAMOTRIGINE
     Dosage: UNK
  4. GOLYTELY [Concomitant]
     Active Substance: POLYETHYLENE GLYCOL 3350\POTASSIUM CHLORIDE\SODIUM BICARBONATE\SODIUM CHLORIDE\SODIUM SULFATE
     Dosage: UNK
  5. HYDROCHLOROTHIAZIDE [Concomitant]
     Active Substance: HYDROCHLOROTHIAZIDE
     Dosage: UNK
  6. ENALAPRIL MALEATE [Concomitant]
     Active Substance: ENALAPRIL MALEATE
     Dosage: UNK
  7. LYRICA [Concomitant]
     Active Substance: PREGABALIN
     Dosage: UNK
  8. CYMBALTA [Concomitant]
     Active Substance: DULOXETINE HYDROCHLORIDE
     Dosage: UNK
  9. CALCIUM [Concomitant]
     Active Substance: CALCIUM
     Dosage: UNK
  10. NASONEX [Concomitant]
     Active Substance: MOMETASONE FUROATE
  11. MIRALAX [Concomitant]
     Active Substance: POLYETHYLENE GLYCOL 3350
  12. VITAMIN B COMPLEX [Concomitant]
     Active Substance: CYANOCOBALAMIN\DEXPANTHENOL\NIACINAMIDE\PYRIDOXINE HYDROCHLORIDE\RIBOFLAVIN 5^-PHOSPHATE SODIUM\THIA
  13. FENTANYL [Concomitant]
     Active Substance: FENTANYL\FENTANYL CITRATE
  14. MORPHINE SULFATE [Concomitant]
     Active Substance: MORPHINE SULFATE
  15. CLONIDINE HYDROCHLORIDE [Concomitant]
     Active Substance: CLONIDINE HYDROCHLORIDE
  16. XANAX [Concomitant]
     Active Substance: ALPRAZOLAM

REACTIONS (5)
  - Depression [Unknown]
  - Condition aggravated [Unknown]
  - Self-injurious ideation [Recovered/Resolved]
  - Decreased interest [Unknown]
  - Nasopharyngitis [Unknown]

NARRATIVE: CASE EVENT DATE: 20240301
